FAERS Safety Report 17428203 (Version 1)
Quarter: 2020Q1

REPORT INFORMATION
  Report Type: Spontaneous
  Country: US (occurrence: US)
  Receive Date: 20200218
  Receipt Date: 20200218
  Transmission Date: 20200409
  Serious: Yes (Other)
  Sender: FDA-Public Use
  Company Number: US-ALKEM LABORATORIES LIMITED-US-ALKEM-2019-04198

PATIENT
  Age: 4 Year
  Sex: Male

DRUGS (12)
  1. AMIKACIN. [Concomitant]
     Active Substance: AMIKACIN
     Indication: SHUNT INFECTION
     Dosage: 15 MILLIGRAM/KILOGRAM, QD
     Route: 042
  2. IMIPENEM-CILASTIN [Concomitant]
     Indication: CENTRAL NERVOUS SYSTEM INFECTION
  3. LINEZOLID. [Suspect]
     Active Substance: LINEZOLID
     Indication: CENTRAL NERVOUS SYSTEM INFECTION
  4. CLOFAZIMINE [Concomitant]
     Active Substance: CLOFAZIMINE
     Indication: MYCOBACTERIUM ABSCESSUS INFECTION
  5. LINEZOLID. [Suspect]
     Active Substance: LINEZOLID
     Indication: SHUNT INFECTION
     Dosage: 10 MILLIGRAM/KILOGRAM
     Route: 042
  6. AMIKACIN. [Concomitant]
     Active Substance: AMIKACIN
     Indication: MYCOBACTERIUM ABSCESSUS INFECTION
     Dosage: UNK, DAILY
  7. IMIPENEM-CILASTIN [Concomitant]
     Indication: MYCOBACTERIUM ABSCESSUS INFECTION
  8. LINEZOLID. [Suspect]
     Active Substance: LINEZOLID
     Indication: MYCOBACTERIUM ABSCESSUS INFECTION
  9. IMIPENEM-CILASTIN [Concomitant]
     Indication: SHUNT INFECTION
     Dosage: UNK
     Route: 065
  10. CLOFAZIMINE [Concomitant]
     Active Substance: CLOFAZIMINE
     Indication: SHUNT INFECTION
     Dosage: 50 MILLIGRAM, QD FOR 5 DAYS A WEEK WAS STARTED ON HD 95
     Route: 048
  11. CLOFAZIMINE [Concomitant]
     Active Substance: CLOFAZIMINE
     Indication: CENTRAL NERVOUS SYSTEM INFECTION
  12. AMIKACIN. [Concomitant]
     Active Substance: AMIKACIN
     Indication: CENTRAL NERVOUS SYSTEM INFECTION

REACTIONS (1)
  - Neutropenia [Unknown]
